FAERS Safety Report 6295539-0 (Version None)
Quarter: 2009Q3

REPORT INFORMATION
  Report Type: 
  Country: None (occurrence: None)
  Receive Date: 20090731
  Receipt Date: 20090715
  Transmission Date: 20100115
  Serious: Yes (Other)
  Sender: FDA-Public Use
  Company Number: FR-SEPTODONT-200900157

PATIENT
  Age: 35 Year
  Sex: Female

DRUGS (4)
  1. SCANDONEST PLAIN [Suspect]
     Indication: LOCAL ANAESTHESIA
     Dosage: DENTAL
     Route: 004
  2. SEGLOR (DIHYDROERGOTAMINE) [Concomitant]
  3. ADVIL [Concomitant]
  4. DI ANTALVIC (PARACETAMOL, DEXTROPROPYXYPHENE) [Concomitant]

REACTIONS (1)
  - PARAESTHESIA [None]
